FAERS Safety Report 5007068-2 (Version None)
Quarter: 2006Q2

REPORT INFORMATION
  Report Type: 
  Country: None (occurrence: None)
  Receive Date: 20060519
  Receipt Date: 20060517
  Transmission Date: 20061013
  Serious: Yes (Hospitalization)
  Sender: FDA-Public Use
  Company Number: JP-BOEHRINGER INGELHEIM PHARMACEUTICALS, INC.-2006-BP-05513NB

PATIENT

DRUGS (6)
  1. MICARDIS [Suspect]
     Indication: HYPERTENSION
     Route: 048
     Dates: start: 20060414, end: 20060430
  2. MUCOSOLVAN [Concomitant]
     Route: 048
  3. THEOLONG [Concomitant]
     Route: 048
  4. RYTHMODAN R (DISOPYRAMIDE PHOSPHATE) [Concomitant]
     Route: 048
  5. ONON [Concomitant]
     Route: 048
  6. MYSLEE [Concomitant]
     Route: 048

REACTIONS (1)
  - HEPATITIS FULMINANT [None]
